FAERS Safety Report 24230892 (Version 3)
Quarter: 2024Q4

REPORT INFORMATION
  Report Type: Spontaneous
  Country: US (occurrence: US)
  Receive Date: 20240821
  Receipt Date: 20241023
  Transmission Date: 20250115
  Serious: Yes (Other)
  Sender: BLUEPRINT MEDICINES
  Company Number: US-Blueprint Medicines Corporation-4507

PATIENT
  Sex: Female

DRUGS (2)
  1. AYVAKIT [Suspect]
     Active Substance: AVAPRITINIB
     Indication: Haematopoietic neoplasm
     Route: 065
     Dates: start: 20240708
  2. AYVAKIT [Suspect]
     Active Substance: AVAPRITINIB
     Route: 048
     Dates: start: 20240708

REACTIONS (11)
  - Neuropathy peripheral [Not Recovered/Not Resolved]
  - Migraine [Unknown]
  - Pain [Unknown]
  - Gastritis [Unknown]
  - Fatigue [Not Recovered/Not Resolved]
  - Nausea [Recovered/Resolved]
  - Platelet count decreased [Recovering/Resolving]
  - Lipoma [Unknown]
  - Abdominal pain upper [Unknown]
  - Petechiae [Unknown]
  - Product dose omission in error [Unknown]
